FAERS Safety Report 4414492-5 (Version None)
Quarter: 2004Q3

REPORT INFORMATION
  Report Type: 
  Country: None (occurrence: None)
  Receive Date: 20040702
  Receipt Date: 20040106
  Transmission Date: 20050211
  Serious: Yes (Death)
  Sender: FDA-Public Use
  Company Number: 355368

PATIENT
  Age: 29 Year
  Sex: Male

DRUGS (2)
  1. CLONAZEPAM [Suspect]
     Dosage: ORAL
     Route: 048
  2. ANTABUSE [Concomitant]

REACTIONS (1)
  - MULTIPLE DRUG OVERDOSE [None]
